FAERS Safety Report 8546189-4 (Version None)
Quarter: 2012Q3

REPORT INFORMATION
  Report Type: 
  Country: None (occurrence: None)
  Receive Date: 20120727
  Receipt Date: 20120723
  Transmission Date: 20120928
  Serious: Yes (Hospitalization)
  Sender: FDA-Public Use
  Company Number: PHHY2012FR032752

PATIENT
  Sex: Male

DRUGS (12)
  1. ALIMTA [Suspect]
     Indication: LUNG ADENOCARCINOMA
     Dosage: 500 MG, UNK
     Route: 042
     Dates: start: 20111209
  2. EPREX [Concomitant]
  3. ATARAX [Concomitant]
  4. POLYETHYLENE GLYCOL [Concomitant]
  5. DIPROSONE [Concomitant]
  6. METOPROLOL TARTRATE [Concomitant]
  7. ZOMETA [Suspect]
     Route: 042
     Dates: start: 20111209
  8. OXYCONTIN [Concomitant]
  9. CARBOPLATIN [Suspect]
     Indication: LUNG ADENOCARCINOMA
     Dates: start: 20111209, end: 20111230
  10. ASPIRIN [Concomitant]
  11. PANTOPRAZOLE [Concomitant]
  12. ATORVASTATIN [Concomitant]

REACTIONS (3)
  - BONE LESION [None]
  - EXCESSIVE GRANULATION TISSUE [None]
  - OSTEONECROSIS [None]
